FAERS Safety Report 9733540 (Version 1)
Quarter: 2013Q4

REPORT INFORMATION
  Report Type: Spontaneous
  Country: US (occurrence: None)
  Receive Date: 20131204
  Receipt Date: 20131204
  Transmission Date: 20140711
  Serious: Yes (Hospitalization)
  Sender: FDA-Public Use
  Company Number: None

PATIENT
  Age: 81 Year
  Sex: Female
  Weight: 115 kg

DRUGS (2)
  1. RIVAROXABAN [Suspect]
     Indication: PULMONARY HYPERTENSION
     Dosage: 1 PILL QHS/BEDTIME ORAL
     Route: 048
  2. WARFARIN [Suspect]
     Indication: PULMONARY HYPERTENSION
     Dosage: 1 PILL VARIES ORAL
     Route: 048

REACTIONS (3)
  - Epistaxis [None]
  - Pulmonary embolism [None]
  - Deep vein thrombosis [None]
